FAERS Safety Report 23986834 (Version 4)
Quarter: 2025Q1

REPORT INFORMATION
  Report Type: Spontaneous
  Country: US (occurrence: US)
  Receive Date: 20240618
  Receipt Date: 20250310
  Transmission Date: 20250408
  Serious: Yes (Other)
  Sender: PFIZER
  Company Number: US-PFIZER INC-202400195281

PATIENT
  Age: 97 Year
  Sex: Female

DRUGS (1)
  1. CIBINQO [Suspect]
     Active Substance: ABROCITINIB
     Indication: Eczema
     Route: 048
     Dates: start: 20230503

REACTIONS (6)
  - Fall [Unknown]
  - Rib fracture [Unknown]
  - Compression fracture [Unknown]
  - Pruritus [Recovered/Resolved]
  - Cellulitis [Recovered/Resolved]
  - Mobility decreased [Unknown]
